FAERS Safety Report 8540406-2 (Version None)
Quarter: 2012Q3

REPORT INFORMATION
  Report Type: 
  Country: None (occurrence: None)
  Receive Date: 20120726
  Receipt Date: 20110428
  Transmission Date: 20120928
  Serious: No
  Sender: FDA-Public Use
  Company Number: US-ASTRAZENECA-2011SE24409

PATIENT
  Sex: Male

DRUGS (3)
  1. SEROQUEL [Suspect]
     Indication: SLEEP DISORDER
     Route: 048
  2. VITAMIN D [Concomitant]
     Dosage: 1000 UNIT
     Dates: start: 20110223
  3. METOPROLOL SUCCINATE [Concomitant]
     Dates: start: 20110223

REACTIONS (2)
  - TACHYCARDIA [None]
  - CARDIAC DISORDER [None]
